FAERS Safety Report 25759585 (Version 3)
Quarter: 2025Q4

REPORT INFORMATION
  Report Type: Spontaneous
  Country: JP (occurrence: JP)
  Receive Date: 20250904
  Receipt Date: 20251105
  Transmission Date: 20260118
  Serious: Yes (Hospitalization, Other)
  Sender: JOHNSON AND JOHNSON
  Company Number: JP-JNJFOC-20250605432

PATIENT
  Age: 68 Year
  Sex: Female

DRUGS (7)
  1. RYBREVANT [Suspect]
     Active Substance: AMIVANTAMAB-VMJW
     Indication: EGFR gene mutation
     Dosage: 1ST TIME
     Route: 041
     Dates: start: 20250603, end: 20250603
  2. RYBREVANT [Suspect]
     Active Substance: AMIVANTAMAB-VMJW
     Dosage: 2ND TIME
     Route: 041
     Dates: start: 20250604, end: 20250604
  3. RYBREVANT [Suspect]
     Active Substance: AMIVANTAMAB-VMJW
     Dosage: 3RD TIME
     Route: 041
     Dates: start: 20250610, end: 20250610
  4. RYBREVANT [Suspect]
     Active Substance: AMIVANTAMAB-VMJW
     Dosage: 4TH TIME, DOSE UNKNOWN
     Route: 041
     Dates: start: 20250617, end: 20250617
  5. LAZCLUZE [Suspect]
     Active Substance: LAZERTINIB
     Indication: EGFR gene mutation
     Route: 048
     Dates: start: 20250609, end: 20250826
  6. LAZCLUZE [Suspect]
     Active Substance: LAZERTINIB
     Route: 048
     Dates: start: 20250827, end: 20250910
  7. LAZCLUZE [Suspect]
     Active Substance: LAZERTINIB
     Route: 048
     Dates: start: 20250911

REACTIONS (9)
  - Pyrexia [Recovered/Resolved]
  - Paronychia [Recovering/Resolving]
  - Skin disorder [Recovering/Resolving]
  - Infusion related reaction [Recovered/Resolved]
  - Pyrexia [Recovered/Resolved]
  - Tachycardia [Recovered/Resolved]
  - Oedema [Not Recovered/Not Resolved]
  - Off label use [Unknown]
  - Off label use [Unknown]

NARRATIVE: CASE EVENT DATE: 20250101
